FAERS Safety Report 12534779 (Version 1)
Quarter: 2016Q3

REPORT INFORMATION
  Report Type: Spontaneous
  Country: US (occurrence: None)
  Receive Date: 20160706
  Receipt Date: 20160706
  Transmission Date: 20161109
  Serious: Yes (Hospitalization)
  Sender: FDA-Public Use
  Company Number: None

PATIENT
  Age: 63 Year
  Sex: Male
  Weight: 104.1 kg

DRUGS (1)
  1. LISINOPRIL, 20MG UNKNOWN [Suspect]
     Active Substance: LISINOPRIL
     Indication: HYPERTENSION
     Route: 048

REACTIONS (6)
  - Hypersensitivity [None]
  - Lip swelling [None]
  - Swollen tongue [None]
  - Acute respiratory failure [None]
  - Pneumonia [None]
  - Acute kidney injury [None]

NARRATIVE: CASE EVENT DATE: 20160329
